FAERS Safety Report 22001694 (Version 1)
Quarter: 2023Q1

REPORT INFORMATION
  Report Type: Spontaneous
  Country: US (occurrence: US)
  Receive Date: 20230216
  Receipt Date: 20230216
  Transmission Date: 20230418
  Serious: No
  Sender: FDA-Public Use
  Company Number: US-LANNETT COMPANY, INC.-US-2022LAN000040

PATIENT
  Sex: Female

DRUGS (2)
  1. ONDANSETRON [Suspect]
     Active Substance: ONDANSETRON
     Indication: Gastrointestinal pain
     Dosage: 1 ML, EVERY 6 TO 8 HOURS AS NEEDED
     Route: 048
     Dates: start: 20170301
  2. ONDANSETRON [Suspect]
     Active Substance: ONDANSETRON
     Indication: Nausea

REACTIONS (2)
  - Reaction to excipient [Unknown]
  - Off label use [Unknown]
